FAERS Safety Report 4417285-8 (Version None)
Quarter: 2004Q3

REPORT INFORMATION
  Report Type: 
  Country: None (occurrence: None)
  Receive Date: 20040806
  Receipt Date: 20040722
  Transmission Date: 20050211
  Serious: Yes (Other)
  Sender: FDA-Public Use
  Company Number: PHEH2004US07940

PATIENT
  Age: 57 Year
  Sex: Male
  Weight: 59 kg

DRUGS (5)
  1. TRILEPTAL [Suspect]
     Indication: CONVULSION
     Dates: start: 20030901
  2. TRILEPTAL [Suspect]
     Dosage: 300 MG, TID
  3. TRILEPTAL [Suspect]
     Dosage: 300 MG, BID
  4. KEPPRA [Concomitant]
     Indication: CONVULSION
     Dates: start: 20030101
  5. CARBATROL [Concomitant]

REACTIONS (8)
  - ALPHA-1 ANTI-TRYPSIN DEFICIENCY [None]
  - DIFFICULTY IN WALKING [None]
  - DIPLOPIA [None]
  - DYSPNOEA [None]
  - LUNG LOBECTOMY [None]
  - LUNG NEOPLASM MALIGNANT [None]
  - PNEUMONIA [None]
  - RASH PRURITIC [None]
